FAERS Safety Report 20034552 (Version 2)
Quarter: 2021Q4

REPORT INFORMATION
  Report Type: Report from Study
  Country: CA (occurrence: CA)
  Receive Date: 20211104
  Receipt Date: 20211115
  Transmission Date: 20220303
  Serious: Yes (Death)
  Sender: FDA-Public Use
  Company Number: CA-CATALYST PHARMACEUTICALS, INC-2021CAT00429

PATIENT
  Sex: Female

DRUGS (1)
  1. FIRDAPSE [Suspect]
     Active Substance: AMIFAMPRIDINE PHOSPHATE
     Indication: Myasthenic syndrome
     Dosage: 30 MG, 3X/DAY
     Route: 048
     Dates: start: 20210810

REACTIONS (2)
  - Death [Fatal]
  - Overdose [Unknown]
